FAERS Safety Report 8499339-2 (Version None)
Quarter: 2012Q3

REPORT INFORMATION
  Report Type: 
  Country: None (occurrence: None)
  Receive Date: 20120710
  Receipt Date: 20120706
  Transmission Date: 20120928
  Serious: Yes (Other)
  Sender: FDA-Public Use
  Company Number: PHHY2012DE058133

PATIENT
  Sex: Female

DRUGS (5)
  1. TOBI [Suspect]
     Indication: CYSTIC FIBROSIS
     Dates: start: 20120308
  2. CITALOPRAM HYDROBROMIDE [Concomitant]
     Dosage: 1 DF, QD
  3. CREON [Concomitant]
  4. COUSTIN INHAL [Concomitant]
  5. SODIUM CHLORIDE [Concomitant]
     Dosage: 1 DF, TID

REACTIONS (3)
  - HAEMOPTYSIS [None]
  - COUGH [None]
  - MUSCLE SPASMS [None]
